FAERS Safety Report 5629538-6 (Version None)
Quarter: 2008Q1

REPORT INFORMATION
  Report Type: 
  Country: None (occurrence: None)
  Receive Date: 20080214
  Receipt Date: 20080214
  Transmission Date: 20080703
  Serious: Yes (Hospitalization)
  Sender: FDA-Public Use
  Company Number: None

PATIENT
  Age: 59 Year
  Sex: Female
  Weight: 109 kg

DRUGS (12)
  1. ALLOPURINOL [Suspect]
     Indication: GOUT
     Dosage: NO INFO GIVEN
  2. ASPIRIN [Concomitant]
  3. COMBIVENT [Concomitant]
  4. DIOVAN [Concomitant]
  5. FLOVENT [Concomitant]
  6. HYDROXYZINE [Concomitant]
  7. NPH [Concomitant]
  8. ASPART [Concomitant]
  9. VERAPAMIL [Concomitant]
  10. LIPITOR [Concomitant]
  11. AMITRIPHYLINE [Concomitant]
  12. ETODOLAC [Concomitant]

REACTIONS (17)
  - ANOREXIA [None]
  - CLOSTRIDIUM DIFFICILE COLITIS [None]
  - CONFUSIONAL STATE [None]
  - DEHYDRATION [None]
  - EOSINOPHILIA [None]
  - INFLUENZA LIKE ILLNESS [None]
  - LIVER FUNCTION TEST ABNORMAL [None]
  - MALAISE [None]
  - NAUSEA [None]
  - ORAL INTAKE REDUCED [None]
  - PHARYNGOLARYNGEAL PAIN [None]
  - PRURITUS [None]
  - RASH [None]
  - RENAL FAILURE ACUTE [None]
  - SKIN EXFOLIATION [None]
  - STOMATITIS [None]
  - VOMITING [None]
